FAERS Safety Report 10248661 (Version 1)
Quarter: 2014Q2

REPORT INFORMATION
  Report Type: Spontaneous
  Country: US (occurrence: None)
  Receive Date: 20140617
  Receipt Date: 20140617
  Transmission Date: 20141212
  Serious: Yes (Other)
  Sender: FDA-Public Use
  Company Number: None

PATIENT
  Age: 44 Year
  Sex: Male
  Weight: 78 kg

DRUGS (4)
  1. RESTASIS 0.05% [Suspect]
     Indication: SJOGREN^S SYNDROME
     Dosage: 1 DROP EACH EYE BID OPHTHALMIC
     Route: 047
     Dates: start: 20140522, end: 20140611
  2. ATORVASTATIN [Concomitant]
  3. SERTRALINE [Concomitant]
  4. LAMOTRAGINE [Concomitant]

REACTIONS (2)
  - Dermatitis contact [None]
  - Conjunctivitis allergic [None]
